FAERS Safety Report 11302845 (Version 3)
Quarter: 2015Q3

REPORT INFORMATION
  Report Type: Spontaneous
  Country: US (occurrence: US)
  Receive Date: 20150723
  Receipt Date: 20150910
  Transmission Date: 20151125
  Serious: Yes (Death, Hospitalization, Other)
  Sender: FDA-Public Use
  Company Number: US-009507513-1507USA009668

PATIENT
  Sex: Female
  Weight: 77.98 kg

DRUGS (2)
  1. JANUMET [Suspect]
     Active Substance: METFORMIN HYDROCHLORIDE\SITAGLIPTIN PHOSPHATE
     Dosage: 50 MG-1000 MG, BID
     Route: 048
     Dates: start: 20090813
  2. JANUMET [Suspect]
     Active Substance: METFORMIN HYDROCHLORIDE\SITAGLIPTIN PHOSPHATE
     Indication: TYPE 2 DIABETES MELLITUS
     Dosage: 50 MG-500 MG, BID
     Route: 048
     Dates: start: 20090506, end: 20140722

REACTIONS (29)
  - Drug tolerance decreased [Unknown]
  - Activated partial thromboplastin time prolonged [Unknown]
  - Urinary tract infection [Not Recovered/Not Resolved]
  - Metastases to liver [Unknown]
  - Malignant ascites [Not Recovered/Not Resolved]
  - Gastrointestinal disorder [Unknown]
  - Blood calcium decreased [Unknown]
  - Varicose vein [Unknown]
  - Pancreatic carcinoma [Fatal]
  - Skin cancer [Unknown]
  - Kyphosis [Unknown]
  - Hysterectomy [Unknown]
  - Deep vein thrombosis [Unknown]
  - International normalised ratio abnormal [Unknown]
  - Carbon dioxide decreased [Unknown]
  - Memory impairment [Unknown]
  - Constipation [Unknown]
  - Caesarean section [Unknown]
  - Prothrombin time prolonged [Unknown]
  - Arthritis [Unknown]
  - Hyperlipidaemia [Unknown]
  - Dyspepsia [Unknown]
  - Vaginal infection [Unknown]
  - Fatigue [Unknown]
  - Blood urea increased [Unknown]
  - Hypertension [Unknown]
  - Measles [Unknown]
  - Vertigo [Unknown]
  - Blood creatinine increased [Unknown]

NARRATIVE: CASE EVENT DATE: 201311
